FAERS Safety Report 6394847-2 (Version None)
Quarter: 2009Q4

REPORT INFORMATION
  Report Type: 
  Country: None (occurrence: None)
  Receive Date: 20091009
  Receipt Date: 20091002
  Transmission Date: 20100525
  Serious: Yes (Other)
  Sender: FDA-Public Use
  Company Number: PHHO2009US12131

PATIENT
  Sex: Male
  Weight: 59 kg

DRUGS (6)
  1. MYFORTIC [Suspect]
     Dosage: UNK
     Dates: start: 20090116
  2. NEORAL [Concomitant]
  3. PREDNISONE [Concomitant]
  4. CLINDAMYCIN [Concomitant]
  5. LISINOPRIL [Concomitant]
  6. FISH OIL [Concomitant]

REACTIONS (2)
  - APLASTIC ANAEMIA [None]
  - NORMOCHROMIC NORMOCYTIC ANAEMIA [None]
